FAERS Safety Report 12509075 (Version 2)
Quarter: 2016Q4

REPORT INFORMATION
  Report Type: Spontaneous
  Country: JP (occurrence: JP)
  Receive Date: 20160629
  Receipt Date: 20161216
  Transmission Date: 20170207
  Serious: Yes (Other)
  Sender: FDA-Public Use
  Company Number: JP-AMGEN-JPNSP2016083799

PATIENT

DRUGS (2)
  1. G-LASTA [Suspect]
     Active Substance: PEGFILGRASTIM
     Indication: PRODUCT USED FOR UNKNOWN INDICATION
     Dosage: UNK
     Route: 065
  2. GRAN [Suspect]
     Active Substance: FILGRASTIM
     Indication: PRODUCT USED FOR UNKNOWN INDICATION
     Dosage: UNK
     Route: 065

REACTIONS (5)
  - Febrile neutropenia [Unknown]
  - Neutrophil count decreased [Unknown]
  - Pneumonia bacterial [Recovering/Resolving]
  - Anaemia [Unknown]
  - Pneumocystis jirovecii pneumonia [Recovering/Resolving]
